FAERS Safety Report 4559372-X (Version None)
Quarter: 2005Q1

REPORT INFORMATION
  Report Type: 
  Country: None (occurrence: None)
  Receive Date: 20050124
  Receipt Date: 20050117
  Transmission Date: 20050727
  Serious: Yes (Other)
  Sender: FDA-Public Use
  Company Number: US-GLAXOSMITHKLINE-A0540828A

PATIENT
  Age: 58 Year
  Sex: Female

DRUGS (1)
  1. EQUATE NICOTINE GUM 4MG [Suspect]
     Dosage: 4MG TWICE PER DAY
     Route: 002
     Dates: start: 20041201

REACTIONS (1)
  - DEPENDENCE [None]
